FAERS Safety Report 9166869 (Version 1)
Quarter: 2013Q1

REPORT INFORMATION
  Report Type: Spontaneous
  Country: GB (occurrence: GB)
  Receive Date: 20130316
  Receipt Date: 20130316
  Transmission Date: 20140127
  Serious: Yes (Death)
  Sender: FDA-Public Use
  Company Number: GB-TEVA-390958ISR

PATIENT
  Age: 40 Year
  Sex: Female
  Weight: 68 kg

DRUGS (3)
  1. VENLAFAXINE [Suspect]
  2. AMITRIPTYLINE [Interacting]
  3. TRAMADOL [Interacting]

REACTIONS (1)
  - Drug interaction [Fatal]
